FAERS Safety Report 10010652 (Version 2)
Quarter: 2014Q2

REPORT INFORMATION
  Report Type: Report from Study
  Country: JP (occurrence: JP)
  Receive Date: 20140314
  Receipt Date: 20140409
  Transmission Date: 20141212
  Serious: Yes (Hospitalization)
  Sender: FDA-Public Use
  Company Number: JP-ROCHE-1360793

PATIENT
  Age: 75 Year
  Sex: Male

DRUGS (9)
  1. METHOXY POLYETHYLENE GLYCOL-EPOETIN BETA [Suspect]
     Indication: NEPHROGENIC ANAEMIA
     Route: 058
     Dates: start: 20130409
  2. GASTER (JAPAN) [Concomitant]
     Route: 048
     Dates: end: 201305
  3. AMLODIN [Concomitant]
     Route: 048
  4. ADALAT CR [Concomitant]
     Route: 048
  5. ADALAT CR [Concomitant]
     Route: 048
     Dates: start: 20130902
  6. MICARDIS [Concomitant]
     Route: 048
     Dates: start: 20130409
  7. MICARDIS [Concomitant]
     Route: 048
     Dates: start: 20130902
  8. FUROSEMIDE [Concomitant]
     Route: 048
     Dates: start: 20130409, end: 20130416
  9. TAKEPRON [Concomitant]
     Route: 048
     Dates: start: 201305

REACTIONS (2)
  - Fat embolism [Recovering/Resolving]
  - Hypertension [Recovering/Resolving]
